FAERS Safety Report 12922927 (Version 2)
Quarter: 2016Q4

REPORT INFORMATION
  Report Type: Spontaneous
  Country: TW (occurrence: TW)
  Receive Date: 20161108
  Receipt Date: 20161212
  Transmission Date: 20170207
  Serious: Yes (Death, Life-Threatening, Hospitalization)
  Sender: FDA-Public Use
  Company Number: TW-PFIZER INC-2016516539

PATIENT
  Age: 46 Year
  Sex: Female

DRUGS (3)
  1. ESTAZOLAM. [Concomitant]
     Active Substance: ESTAZOLAM
     Dosage: UNK
  2. ALPRAZOLAM. [Concomitant]
     Active Substance: ALPRAZOLAM
     Dosage: UNK
  3. VENLAFAXINE HCL [Suspect]
     Active Substance: VENLAFAXINE HYDROCHLORIDE
     Dosage: UNK
     Route: 048

REACTIONS (2)
  - Intentional product use issue [Fatal]
  - Serotonin syndrome [Fatal]
